FAERS Safety Report 17181092 (Version 1)
Quarter: 2019Q4

REPORT INFORMATION
  Report Type: Spontaneous
  Country: PT (occurrence: PT)
  Receive Date: 20191219
  Receipt Date: 20191219
  Transmission Date: 20200122
  Serious: Yes (Other)
  Sender: FDA-Public Use
  Company Number: PT-MYLANLABS-2019M1108984

PATIENT
  Age: 9 Year
  Sex: Female
  Weight: 41 kg

DRUGS (1)
  1. BRUFEN [Suspect]
     Active Substance: IBUPROFEN
     Indication: ANTIPYRESIS
     Dosage: 10ML, 3 A 4X AO DIA
     Route: 048
     Dates: start: 20190802, end: 20190803

REACTIONS (5)
  - Cheilitis [Recovered/Resolved with Sequelae]
  - Vomiting [Recovered/Resolved]
  - Hypersensitivity [Recovered/Resolved with Sequelae]
  - Malaise [Recovered/Resolved]
  - Rash [Recovered/Resolved]

NARRATIVE: CASE EVENT DATE: 20190802
